FAERS Safety Report 17412878 (Version 1)
Quarter: 2020Q1

REPORT INFORMATION
  Report Type: Spontaneous
  Country: US (occurrence: US)
  Receive Date: 20200212
  Receipt Date: 20200212
  Transmission Date: 20200409
  Serious: No
  Sender: FDA-Public Use
  Company Number: None

PATIENT
  Age: 41 Year
  Sex: Female
  Weight: 64.35 kg

DRUGS (1)
  1. LATUDA [Suspect]
     Active Substance: LURASIDONE HYDROCHLORIDE
     Indication: BIPOLAR DISORDER
     Dosage: ?          QUANTITY:1 TABLET(S);?
     Route: 048
     Dates: start: 20191216, end: 20200211

REACTIONS (6)
  - Anxiety [None]
  - Tongue movement disturbance [None]
  - Akathisia [None]
  - Agitation [None]
  - Tardive dyskinesia [None]
  - Trismus [None]

NARRATIVE: CASE EVENT DATE: 20200201
